FAERS Safety Report 4317782-X (Version None)
Quarter: 2004Q1

REPORT INFORMATION
  Report Type: 
  Country: None (occurrence: None)
  Receive Date: 20040315
  Receipt Date: 20040304
  Transmission Date: 20041129
  Serious: Yes (Hospitalization)
  Sender: FDA-Public Use
  Company Number: PHRM2004FR01061

PATIENT
  Age: 80 Year
  Sex: Male

DRUGS (6)
  1. CIBACENE [Suspect]
     Dosage: 1 DF, QD
     Route: 048
     Dates: end: 20030604
  2. ALDACTONE [Suspect]
     Dosage: .5 DF, QD
     Route: 048
     Dates: end: 20030604
  3. AMIODARONE HYDROCHLORIDE [Suspect]
     Dosage: 5 DF DAILY
     Route: 048
     Dates: end: 20030604
  4. LASILIX [Concomitant]
     Dosage: 40 MG DAILY
     Route: 048
  5. PREVISCAN [Concomitant]
     Route: 048
  6. ELISOR [Concomitant]
     Dosage: 1 DF DAILY
     Route: 048

REACTIONS (12)
  - ASTHENIA [None]
  - ATRIOVENTRICULAR BLOCK FIRST DEGREE [None]
  - BLOOD PRESSURE DECREASED [None]
  - BRADYCARDIA [None]
  - BUNDLE BRANCH BLOCK LEFT [None]
  - DRUG INTERACTION [None]
  - DYSPNOEA EXERTIONAL [None]
  - GENERAL PHYSICAL HEALTH DETERIORATION [None]
  - HYPERKALAEMIA [None]
  - HYPERNATRAEMIA [None]
  - INTERNATIONAL NORMALISED RATIO INCREASED [None]
  - RENAL FAILURE [None]
